FAERS Safety Report 8918905 (Version 1)
Quarter: 2012Q4

REPORT INFORMATION
  Report Type: 
  Country: US (occurrence: US)
  Receive Date: 20121121
  Receipt Date: 20121121
  Transmission Date: 20130627
  Serious: Yes (Other)
  Sender: FDA-Public Use
  Company Number: US-PFIZER INC-2012289653

PATIENT
  Sex: Female

DRUGS (1)
  1. CHANTIX [Suspect]
     Dosage: UNK

REACTIONS (7)
  - Dementia [Unknown]
  - Drug ineffective [Unknown]
  - Emphysema [Unknown]
  - Depressed mood [Unknown]
  - Nervousness [Unknown]
  - Swelling [Unknown]
  - Abnormal dreams [Unknown]
